FAERS Safety Report 24569109 (Version 1)
Quarter: 2024Q4

REPORT INFORMATION
  Report Type: Spontaneous
  Country: US (occurrence: US)
  Receive Date: 20241031
  Receipt Date: 20241031
  Transmission Date: 20250114
  Serious: Yes (Other)
  Sender: BLUEPRINT MEDICINES
  Company Number: US-Blueprint Medicines Corporation-5164

PATIENT
  Age: 66 Year
  Sex: Female

DRUGS (1)
  1. AYVAKIT [Suspect]
     Active Substance: AVAPRITINIB
     Indication: Systemic mastocytosis
     Route: 065
     Dates: start: 20240617

REACTIONS (3)
  - Squamous cell carcinoma [Unknown]
  - Contusion [Unknown]
  - Mean cell haemoglobin concentration increased [Unknown]

NARRATIVE: CASE EVENT DATE: 20241023
